FAERS Safety Report 16967831 (Version 2)
Quarter: 2019Q4

REPORT INFORMATION
  Report Type: Spontaneous
  Country: US (occurrence: US)
  Receive Date: 20191028
  Receipt Date: 20191030
  Transmission Date: 20200122
  Serious: No
  Sender: FDA-Public Use
  Company Number: US-PFIZER INC-2018356365

PATIENT
  Age: 58 Year
  Sex: Male
  Weight: 125 kg

DRUGS (4)
  1. LYRICA [Suspect]
     Active Substance: PREGABALIN
     Indication: BACK PAIN
     Dosage: 50 MG, 2X/DAY
  2. LYRICA [Suspect]
     Active Substance: PREGABALIN
     Indication: NEUROPATHY PERIPHERAL
  3. LYRICA [Suspect]
     Active Substance: PREGABALIN
     Indication: SCIATICA
     Dosage: 150 MG, 2X/DAY (AT 1 CAPSULE/DOSAGE FORM (DF) )
     Route: 048
     Dates: start: 2018
  4. LYRICA [Suspect]
     Active Substance: PREGABALIN
     Indication: FIBROMYALGIA
     Dosage: 1 DF, 1X/DAY
     Route: 048

REACTIONS (3)
  - Intentional product misuse [Unknown]
  - Product prescribing error [Unknown]
  - Pain [Unknown]
